FAERS Safety Report 4595892-X (Version None)
Quarter: 2005Q1

REPORT INFORMATION
  Report Type: 
  Country: None (occurrence: None)
  Receive Date: 20050224
  Receipt Date: 20050224
  Transmission Date: 20050727
  Serious: Yes (Death)
  Sender: FDA-Public Use
  Company Number: None

PATIENT
  Sex: Male
  Weight: 99.7913 kg

DRUGS (2)
  1. ALEVE [Suspect]
     Indication: ARTHRITIS
     Dosage: 2 TABLETS A DAY
  2. ALEVE [Suspect]
     Indication: BURSITIS
     Dosage: 2 TABLETS A DAY

REACTIONS (1)
  - MYOCARDIAL INFARCTION [None]
